FAERS Safety Report 11050693 (Version 1)
Quarter: 2015Q2

REPORT INFORMATION
  Report Type: Report from Study
  Country: DE (occurrence: DE)
  Receive Date: 20150421
  Receipt Date: 20150421
  Transmission Date: 20150821
  Serious: Yes (Hospitalization)
  Sender: FDA-Public Use
  Company Number: DE-BIOGENIDEC-2015BI049629

PATIENT
  Age: 38 Year
  Sex: Female
  Weight: 125 kg

DRUGS (1)
  1. TYSABRI [Suspect]
     Active Substance: NATALIZUMAB
     Indication: RELAPSING-REMITTING MULTIPLE SCLEROSIS
     Dates: start: 20080508

REACTIONS (1)
  - Gastric bypass [Recovered/Resolved]

NARRATIVE: CASE EVENT DATE: 20150303
